FAERS Safety Report 6996726-6 (Version None)
Quarter: 2010Q3

REPORT INFORMATION
  Report Type: 
  Country: None (occurrence: None)
  Receive Date: 20100918
  Receipt Date: 20090825
  Transmission Date: 20110219
  Serious: No
  Sender: FDA-Public Use
  Company Number: US-WYE-H10024409

PATIENT
  Sex: Female

DRUGS (10)
  1. EFFEXOR [Suspect]
     Indication: DEPRESSION
     Route: 048
     Dates: start: 20040101, end: 20090619
  2. SIMVASTATIN [Concomitant]
  3. MULTI-VITAMINS [Concomitant]
  4. CETIRIZINE HCL [Concomitant]
  5. NEXIUM [Concomitant]
  6. DICYCLOMINE HYDROCHLORIDE [Concomitant]
  7. ESTRACE [Concomitant]
  8. DETROL [Concomitant]
  9. CELEBREX [Concomitant]
  10. CALCIUM [Concomitant]

REACTIONS (4)
  - CONVERSION DISORDER [None]
  - DRUG WITHDRAWAL SYNDROME [None]
  - LIBIDO DECREASED [None]
  - PARAESTHESIA [None]
